FAERS Safety Report 12185686 (Version 1)
Quarter: 2016Q1

REPORT INFORMATION
  Report Type: Spontaneous
  Country: US (occurrence: US)
  Receive Date: 20160316
  Receipt Date: 20160316
  Transmission Date: 20160526
  Serious: No
  Sender: FDA-Public Use
  Company Number: US-GALDERMA-US15004795

PATIENT
  Age: 54 Year
  Sex: Male

DRUGS (2)
  1. VECTICAL [Suspect]
     Active Substance: CALCITRIOL
     Indication: PSORIATIC ARTHROPATHY
     Dosage: 3 MCG/G
     Route: 061
     Dates: start: 20150615, end: 20150615
  2. DOVE BAR SOAP [Concomitant]
     Indication: THERAPEUTIC SKIN CARE TOPICAL
     Route: 061

REACTIONS (2)
  - Psoriasis [Recovered/Resolved]
  - Skin irritation [Recovered/Resolved]

NARRATIVE: CASE EVENT DATE: 20150615
